FAERS Safety Report 8386750 (Version 3)
Quarter: 2014Q4

REPORT INFORMATION
  Report Type: Spontaneous
  Country: US (occurrence: US)
  Receive Date: 20120202
  Receipt Date: 20141226
  Transmission Date: 20150529
  Serious: Yes (Hospitalization, Other)
  Sender: FDA-Public Use
  Company Number: US-AMGEN-USASP2012001754

PATIENT
  Age: 49 Year
  Sex: Female

DRUGS (1)
  1. ENBREL [Suspect]
     Active Substance: ETANERCEPT
     Indication: RHEUMATOID ARTHRITIS
     Dosage: 25 MG, 2 TIMES/WK
     Route: 065
     Dates: start: 19990630, end: 2010

REACTIONS (19)
  - Rheumatoid arthritis [Not Recovered/Not Resolved]
  - Exostosis [Not Recovered/Not Resolved]
  - Mobility decreased [Not Recovered/Not Resolved]
  - Lymphadenopathy [Recovered/Resolved]
  - Pernicious anaemia [Recovered/Resolved]
  - Gastric operation [Recovered/Resolved]
  - Road traffic accident [Recovered/Resolved]
  - Hand deformity [Recovered/Resolved]
  - Pain [Not Recovered/Not Resolved]
  - Cough [Not Recovered/Not Resolved]
  - Influenza [Not Recovered/Not Resolved]
  - Knee arthroplasty [Recovered/Resolved]
  - Weight decreased [Not Recovered/Not Resolved]
  - Meniscus injury [Recovered/Resolved]
  - Oropharyngeal pain [Recovered/Resolved]
  - Gait disturbance [Not Recovered/Not Resolved]
  - Grip strength decreased [Not Recovered/Not Resolved]
  - Tunnel vision [Recovered/Resolved]
  - Drug effect delayed [Recovered/Resolved]

NARRATIVE: CASE EVENT DATE: 2010
